FAERS Safety Report 5374309-1 (Version None)
Quarter: 2007Q2

REPORT INFORMATION
  Report Type: 
  Country: None (occurrence: None)
  Receive Date: 20070629
  Receipt Date: 20070627
  Transmission Date: 20071010
  Serious: Yes (Life-Threatening, Hospitalization)
  Sender: FDA-Public Use
  Company Number: JP-BAYER-200713201GDS

PATIENT
  Age: 56 Year
  Sex: Male

DRUGS (2)
  1. BUFFERIN [Suspect]
     Indication: ANTICOAGULANT THERAPY
  2. WARFARIN SODIUM [Suspect]
     Indication: ANTICOAGULANT THERAPY

REACTIONS (8)
  - ATELECTASIS [None]
  - CHEST PAIN [None]
  - HAEMORRHAGIC ANAEMIA [None]
  - HAEMOTHORAX [None]
  - IATROGENIC INJURY [None]
  - MUSCULOSKELETAL PAIN [None]
  - PROCEDURAL COMPLICATION [None]
  - PROTHROMBIN TIME PROLONGED [None]
